FAERS Safety Report 8305060-3 (Version None)
Quarter: 2012Q2

REPORT INFORMATION
  Report Type: 
  Country: None (occurrence: None)
  Receive Date: 20120412
  Receipt Date: 20120403
  Transmission Date: 20120825
  Serious: Yes (Hospitalization, Other)
  Sender: FDA-Public Use
  Company Number: 2012031200

PATIENT
  Age: 79 Year
  Sex: Male
  Weight: 73.4827 kg

DRUGS (25)
  1. PRILOSEC [Concomitant]
  2. ASCORBIC ACID [Concomitant]
  3. NIZORAL (KETOONAZOLE) [Concomitant]
  4. BROVANA (ALL OTHER THERAPEUTIC PRODUCTS) [Concomitant]
  5. REQUIP (ROPINIRLE HYDROCHLORIDE) [Concomitant]
  6. LIPITOR (ATOVASTATIN CALCIUM) [Concomitant]
  7. ACETAMINOPHEN [Concomitant]
  8. FISH OIL (FISH OIL) [Concomitant]
  9. HIZENTRA [Suspect]
     Indication: IMMUNODEFICIENCY COMMON VARIABLE
     Dosage: SEE IMAGE
     Route: 058
     Dates: start: 20120329
  10. HIZENTRA [Suspect]
     Indication: IMMUNODEFICIENCY COMMON VARIABLE
     Dosage: SEE IMAGE
     Route: 058
     Dates: start: 20110606
  11. HIZENTRA [Suspect]
     Indication: IMMUNODEFICIENCY COMMON VARIABLE
     Dosage: SEE IMAGE
     Route: 058
     Dates: start: 20120201
  12. SINGULAIR [Concomitant]
  13. HYDROXYCHLOROQUINE SULFATE [Concomitant]
  14. MUCINEX [Concomitant]
  15. HIZENTRA [Suspect]
  16. COLCHICINE [Concomitant]
  17. VALIUM [Concomitant]
  18. FOLIC ACID [Concomitant]
  19. SPIRIVA [Concomitant]
  20. WELCHOL [Concomitant]
  21. FLUOCINONIDE [Concomitant]
  22. ASPIRIN [Concomitant]
  23. VENTOLIN HFRA (SALBUTAMOL SULFATE) [Concomitant]
  24. CACLIUM D (CALCIUM D) [Concomitant]
  25. MULTIVITAMIN (MULTIVITAMIN /00831701/) [Concomitant]

REACTIONS (4)
  - INFUSION SITE SWELLING [None]
  - INFUSION SITE PRURITUS [None]
  - PNEUMONIA [None]
  - INFUSION SITE ERYTHEMA [None]
